FAERS Safety Report 5507209-4 (Version None)
Quarter: 2007Q4

REPORT INFORMATION
  Report Type: 
  Country: None (occurrence: None)
  Receive Date: 20071102
  Receipt Date: 20071018
  Transmission Date: 20080405
  Serious: Yes (Death, Other)
  Sender: FDA-Public Use
  Company Number: KADN20070098

PATIENT
  Age: 17 Year
  Sex: Male
  Weight: 58.9676 kg

DRUGS (3)
  1. MORPHINE [Suspect]
     Dates: end: 20070527
  2. TEMAZEPAM [Suspect]
     Dates: end: 20070527
  3. ALCOHOL [Suspect]
     Dates: end: 20070527

REACTIONS (12)
  - ALCOHOL ABUSE [None]
  - BLOOD CHLORIDE INCREASED [None]
  - BLOOD GLUCOSE DECREASED [None]
  - BLOOD POTASSIUM INCREASED [None]
  - CONTUSION [None]
  - DRUG ABUSE [None]
  - DRUG TOXICITY [None]
  - EXCORIATION [None]
  - ILL-DEFINED DISORDER [None]
  - LOSS OF CONSCIOUSNESS [None]
  - PULMONARY CONGESTION [None]
  - SPLENOMEGALY [None]
